FAERS Safety Report 6824536-9 (Version None)
Quarter: 2010Q3

REPORT INFORMATION
  Report Type: 
  Country: None (occurrence: None)
  Receive Date: 20100708
  Receipt Date: 20100630
  Transmission Date: 20110219
  Serious: Yes (Hospitalization)
  Sender: FDA-Public Use
  Company Number: CA-B.I. PHARMACEUTICALS,INC./RIDGEFIELD-2010-DE-03539GD

PATIENT

DRUGS (1)
  1. MELOXICAM [Suspect]

REACTIONS (1)
  - ACUTE CORONARY SYNDROME [None]
